FAERS Safety Report 24221152 (Version 1)
Quarter: 2024Q3

REPORT INFORMATION
  Report Type: Spontaneous
  Country: IT (occurrence: IT)
  Receive Date: 20240819
  Receipt Date: 20240819
  Transmission Date: 20241017
  Serious: Yes (Other)
  Sender: ROCHE
  Company Number: None

PATIENT
  Age: 40 Year
  Sex: Female

DRUGS (1)
  1. OCREVUS [Suspect]
     Active Substance: OCRELIZUMAB
     Indication: Product used for unknown indication
     Dosage: 600 MG OGNI 6 MESI
     Route: 042
     Dates: start: 202209

REACTIONS (1)
  - Intraductal proliferative breast lesion [Unknown]

NARRATIVE: CASE EVENT DATE: 20240401
